FAERS Safety Report 16850372 (Version 1)
Quarter: 2019Q3

REPORT INFORMATION
  Report Type: Spontaneous
  Country: US (occurrence: US)
  Receive Date: 20190925
  Receipt Date: 20190925
  Transmission Date: 20191005
  Serious: Yes (Hospitalization, Other)
  Sender: FDA-Public Use
  Company Number: US-APOTEX-2019AP022310

PATIENT
  Age: 38 Year
  Sex: Female

DRUGS (2)
  1. DIVALPROEX SODIUM DELAYED-RELEASE TABLETS USP [Suspect]
     Active Substance: DIVALPROEX SODIUM
     Indication: PRODUCT USED FOR UNKNOWN INDICATION
     Dosage: UNK APPROXIMATELY 20 TABLETS ROUGHLY
     Route: 065
  2. QUETIAPINE FUMARATE. [Suspect]
     Active Substance: QUETIAPINE FUMARATE
     Indication: PRODUCT USED FOR UNKNOWN INDICATION
     Dosage: UNK APPROXIMATELY 20 TABLETS ROUGHLY
     Route: 065

REACTIONS (6)
  - Mental impairment [Unknown]
  - Hyperhidrosis [Unknown]
  - Drug level above therapeutic [Recovered/Resolved]
  - Intentional overdose [Unknown]
  - Suicidal ideation [Unknown]
  - Anxiety [Unknown]
